FAERS Safety Report 11050714 (Version 1)
Quarter: 2015Q2

REPORT INFORMATION
  Report Type: Spontaneous
  Country: US (occurrence: US)
  Receive Date: 20150421
  Receipt Date: 20150421
  Transmission Date: 20150821
  Serious: No
  Sender: FDA-Public Use
  Company Number: US-BIOGENIDEC-2015BI050873

PATIENT
  Age: 36 Year
  Sex: Male

DRUGS (1)
  1. TYSABRI [Suspect]
     Active Substance: NATALIZUMAB
     Indication: MULTIPLE SCLEROSIS
     Route: 042
     Dates: start: 20140918

REACTIONS (6)
  - Chills [Recovered/Resolved]
  - Abasia [Recovered/Resolved]
  - Diplopia [Recovered/Resolved]
  - Migraine [Recovered/Resolved]
  - Hemiparesis [Recovered/Resolved]
  - Weight bearing difficulty [Recovered/Resolved]

NARRATIVE: CASE EVENT DATE: 20150406
